FAERS Safety Report 19954019 (Version 2)
Quarter: 2021Q4

REPORT INFORMATION
  Report Type: Spontaneous
  Country: CN (occurrence: CN)
  Receive Date: 20211014
  Receipt Date: 20211102
  Transmission Date: 20220304
  Serious: No
  Sender: FDA-Public Use
  Company Number: CN-LUPIN PHARMACEUTICALS INC.-2021-19065

PATIENT
  Age: 39 Year
  Sex: Male

DRUGS (7)
  1. AMLODIPINE [Suspect]
     Active Substance: AMLODIPINE BESYLATE
     Indication: Hypertension
     Dosage: 5 MILLIGRAM, QD (TABLET)
     Route: 048
     Dates: end: 20190320
  2. ATORVASTATIN CALCIUM [Suspect]
     Active Substance: ATORVASTATIN CALCIUM
     Indication: Hyperlipidaemia
     Dosage: 20 MILLIGRAM, QD (TABLET)
     Route: 048
  3. SACUBITRIL\VALSARTAN [Suspect]
     Active Substance: SACUBITRIL\VALSARTAN
     Indication: Cardiac failure
     Dosage: 50 MILLIGRAM, BID
     Route: 048
     Dates: start: 201812
  4. SACUBITRIL\VALSARTAN [Suspect]
     Active Substance: SACUBITRIL\VALSARTAN
     Dosage: 75 MILLIGRAM, BID
     Route: 048
     Dates: start: 201902
  5. METOPROLOL TARTRATE [Concomitant]
     Active Substance: METOPROLOL TARTRATE
     Indication: Arrhythmia
     Dosage: 25 MILLIGRAM, BID
     Route: 048
     Dates: start: 201812
  6. TORSEMIDE [Concomitant]
     Active Substance: TORSEMIDE
     Indication: Diuretic therapy
     Dosage: 20 MILLIGRAM, QD
     Route: 042
     Dates: start: 201812
  7. WARFARIN [Concomitant]
     Active Substance: WARFARIN
     Indication: Anticoagulant therapy
     Dosage: 1.25 MILLIGRAM, QD
     Route: 048
     Dates: start: 201812

REACTIONS (1)
  - Gingival hypertrophy [Recovering/Resolving]

NARRATIVE: CASE EVENT DATE: 20190201
